FAERS Safety Report 16505664 (Version 3)
Quarter: 2020Q4

REPORT INFORMATION
  Report Type: Spontaneous
  Country: US (occurrence: US)
  Receive Date: 20190701
  Receipt Date: 20201201
  Transmission Date: 20210113
  Serious: No
  Sender: FDA-Public Use
  Company Number: US-SA-2019SA175941

PATIENT

DRUGS (2)
  1. ZYRTEC [Concomitant]
     Active Substance: CETIRIZINE HYDROCHLORIDE
     Indication: UPPER-AIRWAY COUGH SYNDROME
  2. DUPIXENT [Suspect]
     Active Substance: DUPILUMAB
     Indication: DERMATITIS ATOPIC
     Dosage: 300 MG, QOW
     Route: 058
     Dates: start: 20190116

REACTIONS (4)
  - Eye swelling [Unknown]
  - Eczema [Unknown]
  - Ocular hyperaemia [Unknown]
  - Eye pruritus [Unknown]

NARRATIVE: CASE EVENT DATE: 20190625
